FAERS Safety Report 24467560 (Version 1)
Quarter: 2024Q4

REPORT INFORMATION
  Report Type: Report from Study
  Country: US (occurrence: US)
  Receive Date: 20241018
  Receipt Date: 20241018
  Transmission Date: 20250115
  Serious: Yes (Hospitalization)
  Sender: AMGEN
  Company Number: US-AMGEN-USASL2024203708

PATIENT
  Age: 78 Year
  Sex: Male

DRUGS (2)
  1. KRYSTEXXA [Suspect]
     Active Substance: PEGLOTICASE
     Indication: Graves^ disease
     Dosage: UNK
     Route: 040
     Dates: start: 20240919
  2. KRYSTEXXA [Suspect]
     Active Substance: PEGLOTICASE
     Indication: Off label use

REACTIONS (3)
  - Ill-defined disorder [Recovering/Resolving]
  - Vomiting [Recovering/Resolving]
  - Off label use [Unknown]

NARRATIVE: CASE EVENT DATE: 20240101
